FAERS Safety Report 5040233-7 (Version None)
Quarter: 2006Q2

REPORT INFORMATION
  Report Type: 
  Country: None (occurrence: None)
  Receive Date: 20060630
  Receipt Date: 20060622
  Transmission Date: 20061013
  Serious: Yes (Hospitalization)
  Sender: FDA-Public Use
  Company Number: US-JNJFOC-20060605112

PATIENT
  Sex: Female
  Weight: 64.41 kg

DRUGS (4)
  1. REMICADE [Suspect]
     Route: 042
  2. REMICADE [Suspect]
     Route: 042
  3. REMICADE [Suspect]
     Route: 042
  4. REMICADE [Suspect]
     Indication: RHEUMATOID ARTHRITIS
     Dosage: AS OF DEC-2005 THE PATIENT HAD ALREADY RECEIVED 4 PLUS INFUSIONS
     Route: 042

REACTIONS (2)
  - CARDIAC DISORDER [None]
  - COMA [None]
